FAERS Safety Report 7995799-1 (Version None)
Quarter: 2011Q4

REPORT INFORMATION
  Report Type: 
  Country: None (occurrence: None)
  Receive Date: 20111220
  Receipt Date: 20111025
  Transmission Date: 20120403
  Serious: Yes (Death, Other)
  Sender: FDA-Public Use
  Company Number: US-PURDUE-USA-2011-0079878

PATIENT

DRUGS (1)
  1. OXYCONTIN [Suspect]
     Indication: FOETAL EXPOSURE DURING PREGNANCY

REACTIONS (2)
  - SUDDEN INFANT DEATH SYNDROME [None]
  - FOETAL EXPOSURE DURING PREGNANCY [None]
